FAERS Safety Report 6382224-X (Version None)
Quarter: 2009Q3

REPORT INFORMATION
  Report Type: 
  Country: None (occurrence: None)
  Receive Date: 20090928
  Receipt Date: 20090928
  Transmission Date: 20100115
  Serious: Yes (Other)
  Sender: FDA-Public Use
  Company Number: None

PATIENT
  Sex: Female
  Weight: 130.1823 kg

DRUGS (1)
  1. ZICAM NO STRENGTH MANUFACTURES MATRIXX INITIATIVES, INC [Suspect]
     Indication: NASOPHARYNGITIS
     Dosage: SPRAYED INTO NOSE 2X A DAY; I HAD SYMPTOMS
     Dates: start: 20090101

REACTIONS (5)
  - BLOOD PRESSURE INCREASED [None]
  - DYSGEUSIA [None]
  - HEADACHE [None]
  - HYPOAESTHESIA FACIAL [None]
  - PAROSMIA [None]
